FAERS Safety Report 7274567-2 (Version None)
Quarter: 2011Q1

REPORT INFORMATION
  Report Type: 
  Country: None (occurrence: None)
  Receive Date: 20110204
  Receipt Date: 20110121
  Transmission Date: 20110831
  Serious: Yes (Hospitalization)
  Sender: FDA-Public Use
  Company Number: PHHY2011IT05335

PATIENT
  Sex: Female

DRUGS (1)
  1. DICLOFENAC SANDOZ [Suspect]
     Indication: ARTHRALGIA
     Dosage: 1 DF, UPON NEEDED
     Route: 048
     Dates: start: 20100926, end: 20100926

REACTIONS (3)
  - RESPIRATORY FAILURE [None]
  - ERYTHEMA [None]
  - BRONCHOSPASM [None]
